FAERS Safety Report 19452740 (Version 1)
Quarter: 2021Q2

REPORT INFORMATION
  Report Type: Report from Study
  Country: None (occurrence: US)
  Receive Date: 20210623
  Receipt Date: 20210623
  Transmission Date: 20210717
  Serious: Yes (Other)
  Sender: FDA-Public Use
  Company Number: US-ABBVIE-21K-163-3960294-00

PATIENT
  Sex: Female

DRUGS (1)
  1. SKYRIZI [Suspect]
     Active Substance: RISANKIZUMAB-RZAA
     Indication: PSORIASIS
     Route: 058

REACTIONS (5)
  - Cyst [Unknown]
  - Milia [Not Recovered/Not Resolved]
  - Glaucoma [Not Recovered/Not Resolved]
  - Psoriasis [Not Recovered/Not Resolved]
  - Eye laser surgery [Unknown]
